FAERS Safety Report 16841779 (Version 2)
Quarter: 2019Q4

REPORT INFORMATION
  Report Type: Report from Study
  Country: DO (occurrence: DO)
  Receive Date: 20190923
  Receipt Date: 20191016
  Transmission Date: 20200122
  Serious: Yes (Other)
  Sender: FDA-Public Use
  Company Number: PHHY2019DO220693

PATIENT
  Sex: Female
  Weight: 65.76 kg

DRUGS (2)
  1. VYMADA [Suspect]
     Active Substance: SACUBITRIL\VALSARTAN
     Indication: CARDIAC FAILURE
     Dosage: 200 MG, UNK
     Route: 065
  2. NEURAL [Concomitant]
     Active Substance: LAMOTRIGINE
     Indication: HEADACHE
     Dosage: 1 DF
     Route: 065

REACTIONS (3)
  - Pain [Unknown]
  - Disorientation [Unknown]
  - Foot fracture [Recovering/Resolving]
